FAERS Safety Report 6645534-4 (Version None)
Quarter: 2010Q1

REPORT INFORMATION
  Report Type: 
  Country: None (occurrence: None)
  Receive Date: 20100323
  Receipt Date: 20100303
  Transmission Date: 20100710
  Serious: No
  Sender: FDA-Public Use
  Company Number: 2008BI009269

PATIENT
  Age: 39 Year
  Sex: Female

DRUGS (3)
  1. TYSABRI [Suspect]
     Indication: MULTIPLE SCLEROSIS
     Route: 042
     Dates: start: 20060225, end: 20060228
  2. TYSABRI [Suspect]
     Route: 042
     Dates: start: 20080303
  3. CLARITIN [Concomitant]
     Indication: PROPHYLAXIS

REACTIONS (4)
  - ANAEMIA [None]
  - HYPERSENSITIVITY [None]
  - INFUSION RELATED REACTION [None]
  - MULTIPLE SCLEROSIS RELAPSE [None]
